FAERS Safety Report 6922552-X (Version None)
Quarter: 2010Q3

REPORT INFORMATION
  Report Type: 
  Country: None (occurrence: None)
  Receive Date: 20100813
  Receipt Date: 20100804
  Transmission Date: 20110219
  Serious: Yes (Hospitalization)
  Sender: FDA-Public Use
  Company Number: JP-ASTRAZENECA-2010SE06633

PATIENT
  Age: 72 Year
  Sex: Male
  Weight: 65 kg

DRUGS (3)
  1. SYMBICORT [Suspect]
     Indication: ASTHMA
     Dosage: 160/4.5 ?G ONE INHALATION
     Route: 055
     Dates: start: 20100202
  2. SYMBICORT [Suspect]
     Dosage: 0.4 MG AS NEEDED
     Route: 055
     Dates: start: 20100202
  3. SINGULAIR [Concomitant]
     Indication: ASTHMA
     Dosage: DOSE UNKNOWN
     Route: 048
     Dates: end: 20100115

REACTIONS (2)
  - ASTHMA [None]
  - BRONCHOPNEUMONIA [None]
